FAERS Safety Report 24649863 (Version 1)
Quarter: 2024Q4

REPORT INFORMATION
  Report Type: Spontaneous
  Country: US (occurrence: US)
  Receive Date: 20241121
  Receipt Date: 20241121
  Transmission Date: 20250115
  Serious: Yes (Hospitalization, Other)
  Sender: ASTELLAS
  Company Number: US-ASTELLAS-2024-AER-019265

PATIENT
  Age: 68 Year
  Sex: Male

DRUGS (2)
  1. TACROLIMUS [Suspect]
     Active Substance: TACROLIMUS
     Indication: Renal transplant
     Route: 065
     Dates: start: 2020
  2. TACROLIMUS [Suspect]
     Active Substance: TACROLIMUS
     Dosage: TITRATE DOWN
     Route: 065

REACTIONS (3)
  - Acute kidney injury [Unknown]
  - Toxicity to various agents [Unknown]
  - COVID-19 [Unknown]
